FAERS Safety Report 16720128 (Version 1)
Quarter: 2019Q3

REPORT INFORMATION
  Report Type: Spontaneous
  Country: US (occurrence: US)
  Receive Date: 20190702
  Receipt Date: 20190702
  Transmission Date: 20191005
  Serious: Yes (Hospitalization)
  Sender: FDA-Public Use
  Company Number: None

PATIENT
  Age: 68 Year
  Sex: Male

DRUGS (1)
  1. ALOGLIPTIN. [Suspect]
     Active Substance: ALOGLIPTIN
     Indication: DIABETES MELLITUS
     Dates: start: 20190213, end: 20190415

REACTIONS (3)
  - Pancreatitis [None]
  - Constipation [None]
  - Sinus congestion [None]

NARRATIVE: CASE EVENT DATE: 20190417
